FAERS Safety Report 14580245 (Version 4)
Quarter: 2018Q2

REPORT INFORMATION
  Report Type: Report from Study
  Country: US (occurrence: US)
  Receive Date: 20180228
  Receipt Date: 20180420
  Transmission Date: 20180711
  Serious: Yes (Hospitalization, Other)
  Sender: FDA-Public Use
  Company Number: US-B.I. PHARMACEUTICALS,INC./RIDGEFIELD-2018-BI-010265

PATIENT
  Age: 80 Year
  Sex: Female

DRUGS (1)
  1. SPIRIVA [Suspect]
     Active Substance: TIOTROPIUM BROMIDE MONOHYDRATE
     Indication: CHRONIC OBSTRUCTIVE PULMONARY DISEASE
     Dosage: 3 BLISTER PACK IN 1 CARTON (0597-0075-41) } 10 CAPSULE IN 1 BLISTER PACK
     Route: 055

REACTIONS (9)
  - Myocardial infarction [Recovered/Resolved]
  - Hallucination [Recovered/Resolved]
  - Herpes zoster [Recovered/Resolved with Sequelae]
  - Dyspnoea [Unknown]
  - Dysphonia [Not Recovered/Not Resolved]
  - Cardiac failure congestive [Unknown]
  - Heart rate irregular [Unknown]
  - Drug ineffective [Unknown]
  - Mitral valve disease [Unknown]

NARRATIVE: CASE EVENT DATE: 20151102
